FAERS Safety Report 9830390 (Version 1)
Quarter: 2014Q1

REPORT INFORMATION
  Report Type: Report from Study
  Country: CA (occurrence: CA)
  Receive Date: 20140120
  Receipt Date: 20140120
  Transmission Date: 20141002
  Serious: Yes (Other)
  Sender: FDA-Public Use
  Company Number: CA-JNJFOC-20140106494

PATIENT
  Age: 17 Year
  Sex: Male
  Weight: 86 kg

DRUGS (2)
  1. REMICADE [Suspect]
     Indication: CROHN^S DISEASE
     Route: 042
     Dates: start: 20110913
  2. GABAPENTIN [Concomitant]
     Indication: CONVULSION
     Route: 065

REACTIONS (2)
  - Grand mal convulsion [Recovered/Resolved]
  - Wisdom teeth removal [Unknown]
